FAERS Safety Report 19207942 (Version 1)
Quarter: 2021Q2

REPORT INFORMATION
  Report Type: Spontaneous
  Country: US (occurrence: US)
  Receive Date: 20210503
  Receipt Date: 20210503
  Transmission Date: 20210717
  Serious: No
  Sender: FDA-Public Use
  Company Number: US-ABBVIE-20K-163-3415484-00

PATIENT
  Age: 40 Year
  Sex: Female

DRUGS (5)
  1. CREON [Suspect]
     Active Substance: PANCRELIPASE AMYLASE\PANCRELIPASE LIPASE\PANCRELIPASE PROTEASE
     Route: 048
     Dates: start: 20200213, end: 202005
  2. CREON [Suspect]
     Active Substance: PANCRELIPASE AMYLASE\PANCRELIPASE LIPASE\PANCRELIPASE PROTEASE
     Indication: PRODUCT USED FOR UNKNOWN INDICATION
     Route: 048
     Dates: start: 202001, end: 20200212
  3. GAMMA GLOBULIN [Concomitant]
     Active Substance: IMMUNE GLOBULIN NOS
     Indication: PRODUCT USED FOR UNKNOWN INDICATION
     Route: 042
  4. LIPASE [Concomitant]
     Active Substance: LIPASE
     Indication: PRODUCT USED FOR UNKNOWN INDICATION
     Dosage: OTC
  5. CREON [Suspect]
     Active Substance: PANCRELIPASE AMYLASE\PANCRELIPASE LIPASE\PANCRELIPASE PROTEASE
     Route: 048
     Dates: start: 202005

REACTIONS (4)
  - Dizziness [Recovered/Resolved]
  - Therapeutic product effect decreased [Recovered/Resolved]
  - Steatorrhoea [Recovered/Resolved]
  - Prescription drug used without a prescription [Recovered/Resolved]

NARRATIVE: CASE EVENT DATE: 2020
